FAERS Safety Report 17433131 (Version 1)
Quarter: 2020Q1

REPORT INFORMATION
  Report Type: Spontaneous
  Country: US (occurrence: US)
  Receive Date: 20200219
  Receipt Date: 20200219
  Transmission Date: 20200409
  Serious: No
  Sender: FDA-Public Use
  Company Number: US-ELI_LILLY_AND_COMPANY-US202002004776

PATIENT
  Age: 69 Year
  Sex: Female

DRUGS (2)
  1. ZYPREXA [Suspect]
     Active Substance: OLANZAPINE
     Indication: DISTURBANCE IN ATTENTION
     Dosage: 5 MG, UNKNOWN
     Route: 048
  2. ZYPREXA [Suspect]
     Active Substance: OLANZAPINE
     Indication: DISTURBANCE IN ATTENTION
     Dosage: 5 MG, UNKNOWN
     Route: 048

REACTIONS (4)
  - Off label use [Unknown]
  - Asthenia [Unknown]
  - Drug ineffective [Unknown]
  - Dizziness [Unknown]
